FAERS Safety Report 5522184-4 (Version None)
Quarter: 2007Q4

REPORT INFORMATION
  Report Type: 
  Country: None (occurrence: None)
  Receive Date: 20071120
  Receipt Date: 20071115
  Transmission Date: 20080405
  Serious: Yes (Other)
  Sender: FDA-Public Use
  Company Number: A0694773A

PATIENT
  Age: 20 Year
  Sex: Female

DRUGS (3)
  1. WELLBUTRIN XL [Suspect]
     Indication: SEASONAL AFFECTIVE DISORDER
     Dosage: 300MG PER DAY
     Route: 048
     Dates: start: 20071001
  2. BIRTH CONTROL [Concomitant]
  3. ANTIBIOTIC [Concomitant]

REACTIONS (3)
  - ANGER [None]
  - DEPRESSED MOOD [None]
  - SUICIDAL IDEATION [None]
